FAERS Safety Report 15100743 (Version 1)
Quarter: 2018Q3

REPORT INFORMATION
  Report Type: Spontaneous
  Country: JP (occurrence: JP)
  Receive Date: 20180703
  Receipt Date: 20180703
  Transmission Date: 20181010
  Serious: Yes (Hospitalization, Other)
  Sender: FDA-Public Use
  Company Number: JP-B.I. PHARMACEUTICALS,INC./RIDGEFIELD-2018-NB-003504

PATIENT
  Age: 78 Year
  Sex: Female

DRUGS (2)
  1. MICARDIS [Suspect]
     Active Substance: TELMISARTAN
     Indication: CONGESTIVE CARDIOMYOPATHY
     Route: 065
  2. SPIRONOLACTONE. [Suspect]
     Active Substance: SPIRONOLACTONE
     Indication: PRODUCT USED FOR UNKNOWN INDICATION
     Route: 065

REACTIONS (6)
  - Hyperkalaemia [Unknown]
  - Ascites [Unknown]
  - Cardiac dysfunction [Unknown]
  - Malignant peritoneal neoplasm [Unknown]
  - Blood pressure decreased [Unknown]
  - Bradycardia [Unknown]
